FAERS Safety Report 5002912-7 (Version None)
Quarter: 2006Q2

REPORT INFORMATION
  Report Type: 
  Country: None (occurrence: None)
  Receive Date: 20060516
  Receipt Date: 20060502
  Transmission Date: 20061013
  Serious: Yes (Other)
  Sender: FDA-Public Use
  Company Number: PHNU2006AU01888

PATIENT
  Sex: Male

DRUGS (4)
  1. DESERIL [Suspect]
     Indication: HEADACHE
     Route: 048
  2. NICOTINE [Concomitant]
     Indication: SMOKING CESSATION THERAPY
  3. DOLASED [Concomitant]
     Dosage: 3 TO 6/DAY
  4. MOGADON [Concomitant]

REACTIONS (13)
  - AGITATION [None]
  - CONFUSIONAL STATE [None]
  - DISORIENTATION [None]
  - DYSARTHRIA [None]
  - IRRITABILITY [None]
  - MOOD ALTERED [None]
  - NIGHTMARE [None]
  - OVERDOSE [None]
  - SCRATCH [None]
  - SKIN DISORDER [None]
  - SLEEP DISORDER [None]
  - SLEEP WALKING [None]
  - TREMOR [None]
